FAERS Safety Report 15965934 (Version 1)
Quarter: 2019Q1

REPORT INFORMATION
  Report Type: Spontaneous
  Country: US (occurrence: US)
  Receive Date: 20190215
  Receipt Date: 20190215
  Transmission Date: 20190418
  Serious: Yes (Other)
  Sender: FDA-Public Use
  Company Number: US-PFIZER INC-2019060203

PATIENT
  Age: 61 Year
  Sex: Male
  Weight: 81.65 kg

DRUGS (4)
  1. TYLENOL [Concomitant]
     Active Substance: ACETAMINOPHEN
     Dosage: 1300 MG, 2X/DAY (4 TABLETS A DAY TWO IN THE MORNING AND TWO IN THE AFTERNOON)
     Route: 048
  2. HYDROCODONE [Concomitant]
     Active Substance: HYDROCODONE
     Indication: PAIN
     Dosage: 5 MG, UNK (ONCE OR TWICE A DAY)
     Route: 048
     Dates: start: 201609
  3. AMITRIPTYLINE [Concomitant]
     Active Substance: AMITRIPTYLINE
     Indication: HEADACHE
     Dosage: 50 MG, 1X/DAY (AT NIGHT)
     Route: 048
  4. LYRICA [Suspect]
     Active Substance: PREGABALIN
     Indication: NEURALGIA
     Dosage: 150 MG, 3X/DAY
     Route: 048

REACTIONS (3)
  - Condition aggravated [Unknown]
  - Suicidal ideation [Unknown]
  - Neuralgia [Unknown]
